FAERS Safety Report 9797472 (Version 1)
Quarter: 2014Q1

REPORT INFORMATION
  Report Type: Spontaneous
  Country: GB (occurrence: GB)
  Receive Date: 20140106
  Receipt Date: 20140106
  Transmission Date: 20141002
  Serious: Yes (Hospitalization)
  Sender: FDA-Public Use
  Company Number: ALCN2013GB006395

PATIENT
  Age: 46 Year
  Sex: 0

DRUGS (4)
  1. CIPROFLOXACIN [Suspect]
     Dosage: 1 DF, UNK
     Route: 065
     Dates: start: 20111018
  2. CIPROFLOXACIN [Suspect]
     Dosage: 1 DF, UNK
     Route: 047
     Dates: start: 20111103
  3. TRIMETHOPRIM [Suspect]
     Dosage: 1 DF, UNK
     Route: 065
     Dates: start: 20111127
  4. NITROFURANTOIN [Suspect]
     Dosage: 1 DF, QD
     Route: 065
     Dates: start: 20110927

REACTIONS (1)
  - Clostridium difficile infection [Recovered/Resolved]
